FAERS Safety Report 9358693 (Version 1)
Quarter: 2013Q2

REPORT INFORMATION
  Report Type: Spontaneous
  Country: FR (occurrence: FR)
  Receive Date: 20130620
  Receipt Date: 20130620
  Transmission Date: 20140414
  Serious: Yes (Hospitalization)
  Sender: FDA-Public Use
  Company Number: FR-GLAXOSMITHKLINE-B0899952A

PATIENT
  Age: 30 Year
  Sex: Male

DRUGS (1)
  1. TROBALT [Suspect]
     Indication: EPILEPSY
     Route: 048

REACTIONS (3)
  - Hallucination [Not Recovered/Not Resolved]
  - Delirium [Not Recovered/Not Resolved]
  - Intentional self-injury [Not Recovered/Not Resolved]
